FAERS Safety Report 13982466 (Version 1)
Quarter: 2017Q3

REPORT INFORMATION
  Report Type: Report from Study
  Country: DE (occurrence: DE)
  Receive Date: 20170918
  Receipt Date: 20170918
  Transmission Date: 20171128
  Serious: Yes (Death)
  Sender: FDA-Public Use
  Company Number: DE-AMGEN-DEUNI2017140125

PATIENT
  Age: 51 Year
  Sex: Male
  Weight: 83 kg

DRUGS (16)
  1. PANTOPRAZOLE [Concomitant]
     Active Substance: PANTOPRAZOLE
     Indication: PROPHYLAXIS
     Dosage: 20 MG, UNK
     Route: 048
     Dates: start: 20170224
  2. NOVALGIN [Concomitant]
     Active Substance: METAMIZOLE SODIUM
     Indication: PAIN
     Dosage: 500 MG, UNK
     Route: 048
  3. IRINOTECAN [Suspect]
     Active Substance: IRINOTECAN
     Dosage: 290 MG, UNK
     Route: 065
     Dates: start: 20170322, end: 20170322
  4. FLUOROURACIL. [Suspect]
     Active Substance: FLUOROURACIL
     Dosage: 2600 MG, UNK
     Route: 042
     Dates: start: 20170322, end: 20170322
  5. FLUOROURACIL. [Suspect]
     Active Substance: FLUOROURACIL
     Dosage: 470 MG, UNK
     Route: 040
     Dates: start: 20170322, end: 20170322
  6. ALOXI [Concomitant]
     Active Substance: PALONOSETRON HYDROCHLORIDE
     Indication: PROPHYLAXIS OF NAUSEA AND VOMITING
     Dosage: 250 MUG, UNK PER CYCLE
     Route: 042
     Dates: start: 20170125, end: 20170322
  7. PANITUMUMAB [Suspect]
     Active Substance: PANITUMUMAB
     Indication: COLORECTAL CANCER METASTATIC
     Dosage: 500 MG, UNK
     Route: 042
     Dates: start: 20170125
  8. IRINOTECAN [Suspect]
     Active Substance: IRINOTECAN
     Indication: COLORECTAL CANCER METASTATIC
     Dosage: 300 MG, UNK
     Route: 065
     Dates: start: 20170125
  9. DOXYCYCLIN [Concomitant]
     Active Substance: DOXYCYCLINE
     Indication: PROPHYLAXIS
     Dosage: 100 MG, QD
     Route: 048
     Dates: start: 20170125
  10. PANITUMUMAB [Suspect]
     Active Substance: PANITUMUMAB
     Dosage: 440 MG, UNK
     Route: 042
     Dates: start: 20170322, end: 20170322
  11. GRANISETRON [Concomitant]
     Active Substance: GRANISETRON
     Indication: PROPHYLAXIS OF NAUSEA AND VOMITING
     Dosage: 2 MG, UNK PER CYCLE
     Route: 048
     Dates: start: 20170125, end: 20170322
  12. FOLINIC ACID [Suspect]
     Active Substance: LEUCOVORIN
     Indication: COLORECTAL CANCER METASTATIC
     Dosage: 800 MG, UNK
     Route: 065
     Dates: start: 20170125, end: 20170322
  13. FORTECORTIN [Concomitant]
     Active Substance: DEXAMETHASONE
     Dosage: 8 MG, UNK PER CYCLE
     Route: 048
     Dates: start: 20170125, end: 20170322
  14. HYDROCORTISON [Concomitant]
     Active Substance: HYDROCORTISONE
     Indication: PROPHYLAXIS
     Dosage: 4 UNK, UNK
     Route: 061
     Dates: start: 20170125
  15. FLUOROURACIL. [Suspect]
     Active Substance: FLUOROURACIL
     Indication: COLORECTAL CANCER METASTATIC
     Dosage: 500 MG, UNK
     Route: 040
     Dates: start: 20170125
  16. FLUOROURACIL. [Suspect]
     Active Substance: FLUOROURACIL
     Dosage: 4800 MG, UNK
     Route: 042
     Dates: start: 20170125

REACTIONS (2)
  - Death [Fatal]
  - Rash generalised [Recovering/Resolving]

NARRATIVE: CASE EVENT DATE: 20170208
